FAERS Safety Report 5388059-9 (Version None)
Quarter: 2007Q3

REPORT INFORMATION
  Report Type: 
  Country: None (occurrence: None)
  Receive Date: 20070716
  Receipt Date: 20070705
  Transmission Date: 20080115
  Serious: Yes (Hospitalization)
  Sender: FDA-Public Use
  Company Number: GB-ROCHE-54240

PATIENT
  Age: 52 Year
  Sex: Female
  Weight: 60 kg

DRUGS (2)
  1. LARIAM [Suspect]
     Indication: MALARIA PROPHYLAXIS
     Route: 048
     Dates: start: 19941115, end: 19941212
  2. PIZOTIFEN [Interacting]
     Route: 065
     Dates: start: 19941212

REACTIONS (8)
  - ANXIETY [None]
  - CHEST PAIN [None]
  - DRUG INTERACTION [None]
  - FATIGUE [None]
  - HEAD DISCOMFORT [None]
  - NAUSEA [None]
  - PANIC ATTACK [None]
  - VISUAL DISTURBANCE [None]
